FAERS Safety Report 16963291 (Version 1)
Quarter: 2019Q4

REPORT INFORMATION
  Report Type: Spontaneous
  Country: RO (occurrence: RO)
  Receive Date: 20191025
  Receipt Date: 20191025
  Transmission Date: 20200122
  Serious: Yes (Other)
  Sender: FDA-Public Use
  Company Number: RO-ASTRAZENECA-2019SF49483

PATIENT
  Sex: Female

DRUGS (5)
  1. ASPENTER [Concomitant]
     Active Substance: ASPIRIN
  2. TRITACE [Concomitant]
     Active Substance: RAMIPRIL
     Dosage: 5 MG
  3. FORXIGA [Suspect]
     Active Substance: DAPAGLIFLOZIN
     Dosage: 10.0MG UNKNOWN
     Route: 048
     Dates: start: 20180508, end: 20191003
  4. ATORIS [Concomitant]
     Active Substance: ATORVASTATIN CALCIUM
     Dosage: 20 MG
  5. METFORMIN [Concomitant]
     Active Substance: METFORMIN HYDROCHLORIDE
     Dosage: 2000 MG

REACTIONS (3)
  - Perineal injury [Unknown]
  - Haemorrhage [Unknown]
  - Immunodeficiency [Unknown]
